FAERS Safety Report 6133048-X (Version None)
Quarter: 2009Q1

REPORT INFORMATION
  Report Type: 
  Country: None (occurrence: None)
  Receive Date: 20090326
  Receipt Date: 20090313
  Transmission Date: 20090719
  Serious: Yes (Life-Threatening, Other)
  Sender: FDA-Public Use
  Company Number: CA-PFIZER INC-2009185523

PATIENT

DRUGS (6)
  1. VARENICLINE TARTRATE [Suspect]
     Indication: SMOKING CESSATION THERAPY
     Dosage: UNK
     Route: 048
     Dates: start: 20090202
  2. LANTUS [Suspect]
     Indication: TYPE 1 DIABETES MELLITUS
  3. HUMALOG [Concomitant]
     Dosage: UNK
     Route: 058
  4. ASAPHEN [Concomitant]
     Dosage: UNK
     Route: 048
     Dates: start: 20030101
  5. MESALAMINE [Concomitant]
     Route: 048
     Dates: start: 20061001
  6. CALCIUM WITH VITAMIN D [Concomitant]
     Dosage: UNK
     Route: 048
     Dates: start: 20020101

REACTIONS (1)
  - HYPERGLYCAEMIA [None]
